FAERS Safety Report 25535407 (Version 2)
Quarter: 2025Q3

REPORT INFORMATION
  Report Type: Spontaneous
  Country: US (occurrence: US)
  Receive Date: 20250709
  Receipt Date: 20250917
  Transmission Date: 20251020
  Serious: No
  Sender: ARDELYX
  Company Number: US-ARDELYX-2025ARDX002829

PATIENT
  Age: 45 Year
  Sex: Male

DRUGS (3)
  1. XPHOZAH [Suspect]
     Active Substance: TENAPANOR HYDROCHLORIDE
     Indication: Product used for unknown indication
     Route: 048
     Dates: start: 20241113
  2. XPHOZAH [Suspect]
     Active Substance: TENAPANOR HYDROCHLORIDE
     Route: 048
  3. CALCITRIOL [Concomitant]
     Active Substance: CALCITRIOL
     Indication: Product used for unknown indication
     Route: 065

REACTIONS (1)
  - Diarrhoea [Recovering/Resolving]

NARRATIVE: CASE EVENT DATE: 20250101
